FAERS Safety Report 9201896 (Version 1)
Quarter: 2013Q2

REPORT INFORMATION
  Report Type: Spontaneous
  Country: US (occurrence: US)
  Receive Date: 20130401
  Receipt Date: 20130401
  Transmission Date: 20140414
  Serious: Yes (Hospitalization)
  Sender: FDA-Public Use
  Company Number: US-BAYER-2013-037617

PATIENT
  Age: 40 Year
  Sex: Female
  Weight: 72.5 kg

DRUGS (4)
  1. YAZ [Suspect]
  2. GIANVI [Suspect]
  3. STEROIDS [Concomitant]
  4. IBUPROFEN [Concomitant]
     Indication: PAIN

REACTIONS (1)
  - Deep vein thrombosis [None]
